FAERS Safety Report 23222164 (Version 2)
Quarter: 2023Q4

REPORT INFORMATION
  Report Type: Spontaneous
  Country: US (occurrence: US)
  Receive Date: 20231123
  Receipt Date: 20231213
  Transmission Date: 20240109
  Serious: No
  Sender: FDA-Public Use
  Company Number: US-LUPIN PHARMACEUTICALS INC.-2023-10341

PATIENT

DRUGS (1)
  1. ALBUTEROL SULFATE [Suspect]
     Active Substance: ALBUTEROL SULFATE
     Indication: Cystic fibrosis
     Dosage: UNK
     Dates: start: 202310

REACTIONS (5)
  - Product use in unapproved indication [Unknown]
  - Device delivery system issue [Unknown]
  - Device issue [Unknown]
  - Device breakage [Unknown]
  - No adverse event [Unknown]
